FAERS Safety Report 8065642-3 (Version None)
Quarter: 2012Q1

REPORT INFORMATION
  Report Type: 
  Country: None (occurrence: None)
  Receive Date: 20120124
  Receipt Date: 20120116
  Transmission Date: 20120608
  Serious: Yes (Hospitalization, Other)
  Sender: FDA-Public Use
  Company Number: US-BAYER-2011-055480

PATIENT
  Age: 26 Year
  Sex: Female
  Weight: 54.422 kg

DRUGS (4)
  1. IBUPROFEN [Concomitant]
     Dosage: UNK
     Dates: start: 19960101
  2. YASMIN [Suspect]
     Indication: ACNE
     Dosage: UNK
     Dates: start: 20070101, end: 20100101
  3. DROSPIRENONE AND ETHINYL ESTRADIOL [Suspect]
     Dosage: UNK
     Dates: start: 20070101
  4. CIPROFLOXACIN [Concomitant]

REACTIONS (15)
  - ALCOHOLISM [None]
  - BILIARY DYSKINESIA [None]
  - PULMONARY EMBOLISM [None]
  - GALLBLADDER DISORDER [None]
  - CEREBROVASCULAR ACCIDENT [None]
  - INJURY [None]
  - DEPRESSION [None]
  - ANXIETY [None]
  - MENTAL DISORDER [None]
  - CHOLECYSTITIS CHRONIC [None]
  - MYOCARDIAL INFARCTION [None]
  - PAIN [None]
  - FEAR [None]
  - DEEP VEIN THROMBOSIS [None]
  - ANHEDONIA [None]
